FAERS Safety Report 17856063 (Version 1)
Quarter: 2020Q2

REPORT INFORMATION
  Report Type: Spontaneous
  Country: DK (occurrence: DK)
  Receive Date: 20200603
  Receipt Date: 20200603
  Transmission Date: 20200714
  Serious: Yes (Hospitalization)
  Sender: FDA-Public Use
  Company Number: DK-TEVA-2020-DK-1242712

PATIENT
  Age: 77 Year
  Sex: Male

DRUGS (14)
  1. TRAMADOL. [Concomitant]
     Active Substance: TRAMADOL
     Indication: PAIN
     Dosage: STRENGTH: 50 MG?DOSAGE: NO MORE THAN 3 TIMES DAILY, UNIT DOSE: 50 MG
     Route: 048
     Dates: start: 20191008
  2. FUROSEMIDE. [Concomitant]
     Active Substance: FUROSEMIDE
     Indication: DIURETIC THERAPY
     Dosage: STRENGTH: 40 MG, UNIT DOSE: 40 MG
     Route: 048
     Dates: start: 20191021
  3. CALCIUM OG D-VITAMIN [Concomitant]
     Indication: MINERAL SUPPLEMENTATION
     Dosage: STRENGTH: 400 MG + 19 MICROGRAMS, UNIT DOSE: 2 DOSAGE FORMS
     Route: 048
     Dates: start: 20190308, end: 20200422
  4. CLOPIDOGREL [Concomitant]
     Active Substance: CLOPIDOGREL BISULFATE
     Indication: THROMBOSIS PROPHYLAXIS
     Dosage: STRENGTH: 75 MG, UNIT DOSE: 75 MG
     Route: 048
     Dates: start: 20191127
  5. PARACETAMOL [Concomitant]
     Active Substance: ACETAMINOPHEN
     Indication: PAIN
     Dosage: STRENGTH: 500 MG, UNIT DOSE: 3000 MG
     Route: 048
     Dates: start: 20150807
  6. KETOCONAZOLE. [Concomitant]
     Active Substance: KETOCONAZOLE
     Indication: SKIN EXFOLIATION
     Dosage: STRENGTH: 2%?DOSAGE: 2 PIECES PER WEEK
     Route: 003
     Dates: start: 20190103
  7. ALENDRONAT [Suspect]
     Active Substance: ALENDRONATE SODIUM
     Indication: OSTEOPOROSIS
     Dosage: STRENGTH: 70 MG, UNIT DOSE: 70 MG
     Route: 048
     Dates: start: 20200126, end: 20200329
  8. POTASSIUM CHLORIDE. [Concomitant]
     Active Substance: POTASSIUM CHLORIDE
     Indication: MINERAL SUPPLEMENTATION
     Dosage: STRENGTH: 750 MG, UNIT DOSE: 1500 MG
     Route: 048
     Dates: start: 20191216
  9. IPRATROPIUM [Concomitant]
     Active Substance: IPRATROPIUM
     Indication: RHINORRHOEA
     Dosage: STRENGTH: 21 MICROGRAMS / DOSE, UNIT DOSE: 252 MCG
     Route: 045
     Dates: start: 20190618
  10. PREDNISOLONE. [Concomitant]
     Active Substance: PREDNISOLONE
     Indication: ADRENOCORTICAL STEROID THERAPY
     Dosage: STRENGTH: 5 MG, UNIT DOSE: 17.5 MG
     Route: 048
     Dates: start: 20180515
  11. ELIQUIS [Concomitant]
     Active Substance: APIXABAN
     Indication: THROMBOSIS PROPHYLAXIS
     Dosage: STRENGTH: 5 MG, UNIT DOSE: 10 MG
     Route: 048
     Dates: start: 20191205
  12. ENALAPRIL [Concomitant]
     Active Substance: ENALAPRIL
     Indication: CARDIAC DISORDER
     Dosage: STRENGTH: 5 MG, UNIT DOSE: 5 MG
     Route: 048
     Dates: start: 20190307
  13. PANTOPRAZOLE [Concomitant]
     Active Substance: PANTOPRAZOLE
     Indication: GASTROOESOPHAGEAL REFLUX DISEASE
     Dosage: STRENGTH: 40 MG, UNIT DOSE: 40 MG
     Route: 048
     Dates: start: 20190528
  14. GLYCERYLNITRAT [Concomitant]
     Indication: ANGINA PECTORIS
     Dosage: STRENGTH: 0.4 MG / DOSE?DOSAGE: 1-2 BREATHS IF NEEDED
     Route: 060
     Dates: start: 20190715

REACTIONS (2)
  - Hepatic enzyme increased [Recovering/Resolving]
  - Hepatitis toxic [Recovering/Resolving]

NARRATIVE: CASE EVENT DATE: 2020
